FAERS Safety Report 7539581-8 (Version None)
Quarter: 2011Q2

REPORT INFORMATION
  Report Type: 
  Country: None (occurrence: None)
  Receive Date: 20110610
  Receipt Date: 20110103
  Transmission Date: 20111010
  Serious: Yes (Other)
  Sender: FDA-Public Use
  Company Number: US-BAYER-201041084NA

PATIENT
  Age: 26 Year
  Sex: Female
  Weight: 54 kg

DRUGS (20)
  1. ADVAIR DISKUS 100/50 [Concomitant]
     Indication: ASTHMA
     Dates: start: 20030101
  2. OMEPRAZOLE [Concomitant]
     Indication: ABDOMINAL PAIN
     Dates: start: 20080101, end: 20100615
  3. NAPHCON [Concomitant]
  4. YASMIN [Suspect]
     Dates: start: 20090101, end: 20090301
  5. PHENERGAN HCL [Concomitant]
  6. LOESTRIN 1.5/30 [Concomitant]
  7. NEXIUM [Concomitant]
  8. LUNESTA [Concomitant]
  9. ALLEGRA [Concomitant]
     Indication: MULTIPLE ALLERGIES
     Dates: start: 20090101
  10. CETIRIZINE HCL [Concomitant]
  11. YASMIN [Suspect]
     Indication: ORAL CONTRACEPTION
     Dosage: UNK
     Dates: start: 20070901, end: 20071201
  12. YASMIN [Suspect]
     Dosage: UNK
     Dates: start: 20090901, end: 20090901
  13. SINGULAIR [Concomitant]
     Indication: ASTHMA
     Dates: start: 20090101
  14. ALBUTEROL SULFATE AUTOHALER [Concomitant]
     Indication: ASTHMA
     Dates: start: 20020101
  15. ZYRTEC [Concomitant]
  16. YASMIN [Suspect]
     Dates: start: 20090301, end: 20090801
  17. PRILOSEC [Concomitant]
  18. YASMIN [Suspect]
     Dates: start: 20080101, end: 20080401
  19. YASMIN [Suspect]
     Dates: start: 20080701, end: 20081101
  20. IBUPROFEN [Concomitant]
     Indication: LIMB INJURY
     Dates: start: 20090101

REACTIONS (2)
  - ABDOMINAL PAIN UPPER [None]
  - BILIARY DYSKINESIA [None]
